FAERS Safety Report 13480386 (Version 2)
Quarter: 2017Q2

REPORT INFORMATION
  Report Type: Spontaneous
  Country: US (occurrence: US)
  Receive Date: 20170425
  Receipt Date: 20170428
  Transmission Date: 20170830
  Serious: Yes (Hospitalization, Other)
  Sender: FDA-Public Use
  Company Number: US-ABBVIE-17P-163-1953835-00

PATIENT
  Age: 42 Year
  Sex: Male

DRUGS (8)
  1. METFORMIN [Concomitant]
     Active Substance: METFORMIN HYDROCHLORIDE
     Indication: PRODUCT USED FOR UNKNOWN INDICATION
  2. VALPROATE SODIUM. [Suspect]
     Active Substance: VALPROATE SODIUM
     Indication: SCHIZOAFFECTIVE DISORDER BIPOLAR TYPE
     Route: 065
  3. ARIPIPRAZOLE. [Concomitant]
     Active Substance: ARIPIPRAZOLE
     Indication: PRODUCT USED FOR UNKNOWN INDICATION
  4. LORAZEPAM. [Concomitant]
     Active Substance: LORAZEPAM
     Indication: PRODUCT USED FOR UNKNOWN INDICATION
  5. SIMVASTATIN. [Concomitant]
     Active Substance: SIMVASTATIN
     Indication: PRODUCT USED FOR UNKNOWN INDICATION
  6. VALPROATE SODIUM. [Suspect]
     Active Substance: VALPROATE SODIUM
     Route: 065
  7. MIRTAZAPINE. [Concomitant]
     Active Substance: MIRTAZAPINE
     Indication: PRODUCT USED FOR UNKNOWN INDICATION
  8. LISINOPRIL. [Concomitant]
     Active Substance: LISINOPRIL
     Indication: PRODUCT USED FOR UNKNOWN INDICATION

REACTIONS (22)
  - Sleep disorder [Unknown]
  - Dyskinesia [Unknown]
  - Confusional arousal [Unknown]
  - Hyporesponsive to stimuli [Unknown]
  - Electroencephalogram abnormal [Unknown]
  - Speech disorder [Unknown]
  - Gait disturbance [Unknown]
  - Asterixis [Unknown]
  - Disorientation [Unknown]
  - Catatonia [Unknown]
  - Disturbance in attention [Unknown]
  - Toxicity to various agents [Recovered/Resolved]
  - Hyperammonaemic encephalopathy [Recovered/Resolved]
  - Confusional state [Unknown]
  - Affect lability [Unknown]
  - Delirium [Unknown]
  - Hyperammonaemia [Unknown]
  - Depressed mood [Unknown]
  - Abnormal behaviour [Unknown]
  - Nausea [Unknown]
  - Ataxia [Unknown]
  - Disorganised speech [Unknown]
